FAERS Safety Report 5803334-9 (Version None)
Quarter: 2008Q2

REPORT INFORMATION
  Report Type: 
  Country: None (occurrence: None)
  Receive Date: 20080627
  Receipt Date: 20080410
  Transmission Date: 20081010
  Serious: Yes (Hospitalization)
  Sender: FDA-Public Use
  Company Number: 558128

PATIENT
  Age: 50 Year
  Sex: Female

DRUGS (5)
  1. INTERFERON ALFA (INTERFERON ALFA) [Suspect]
     Indication: HEPATITIS C
     Dosage: 3 PER WEEK
     Dates: start: 20030401, end: 20031001
  2. RIBAVIRIN [Suspect]
     Indication: HEPATITIS C
     Dates: start: 20030401, end: 20031001
  3. PEGASYS [Suspect]
     Indication: HEPATITIS C
     Dosage: 180 MG 1 PER WEEK
     Dates: start: 20080401
  4. RIBAVIRIN [Suspect]
     Indication: HEPATITIS C
     Dosage: 1200 MG DAILY
     Dates: start: 20080401
  5. HYPERTENSIVE NOS (HYPERTENSIVE NOS) [Suspect]
     Indication: HYPERTENSION
     Dates: start: 20030401

REACTIONS (8)
  - ANAPHYLACTOID REACTION [None]
  - DEPRESSION [None]
  - DIARRHOEA [None]
  - FATIGUE [None]
  - NAUSEA [None]
  - NO THERAPEUTIC RESPONSE [None]
  - RASH [None]
  - VOMITING [None]
